FAERS Safety Report 4619687-3 (Version None)
Quarter: 2005Q1

REPORT INFORMATION
  Report Type: 
  Country: None (occurrence: None)
  Receive Date: 20050317
  Receipt Date: 20050317
  Transmission Date: 20050727
  Serious: Yes (Hospitalization)
  Sender: FDA-Public Use
  Company Number: None

PATIENT
  Age: 70 Year
  Sex: Male

DRUGS (10)
  1. VERAPAMIL [Suspect]
     Indication: HYPERTENSION
     Dosage: 240MG PO  QD
     Route: 048
     Dates: start: 20040830, end: 20041126
  2. BICITRA [Concomitant]
  3. ENALAPRIL MALEATE [Concomitant]
  4. FERROUS SULFATE TAB [Concomitant]
  5. FUROSEMIDE [Concomitant]
  6. GLIPIZIDE [Concomitant]
  7. METHYLCELLULOSE [Concomitant]
  8. SIMVASTATIN [Concomitant]
  9. TRAVOPROST [Concomitant]
  10. VERAPAMIL HCL [Concomitant]

REACTIONS (1)
  - CHEST PAIN [None]
